FAERS Safety Report 9404606 (Version 1)
Quarter: 2013Q3

REPORT INFORMATION
  Report Type: Report from Study
  Country: GB (occurrence: GB)
  Receive Date: 20130717
  Receipt Date: 20130717
  Transmission Date: 20140515
  Serious: Yes (Other)
  Sender: FDA-Public Use
  Company Number: GB-PFIZER INC-2013206296

PATIENT
  Age: 55 Year
  Sex: Female

DRUGS (1)
  1. PIROXICAM [Suspect]
     Indication: SINUSITIS
     Dosage: UNK

REACTIONS (1)
  - Acute generalised exanthematous pustulosis [Unknown]
